FAERS Safety Report 16012548 (Version 1)
Quarter: 2019Q1

REPORT INFORMATION
  Report Type: Spontaneous
  Country: US (occurrence: US)
  Receive Date: 20190130
  Receipt Date: 20190130
  Transmission Date: 20190418
  Serious: Yes (Hospitalization)
  Sender: FDA-Public Use
  Company Number: None

PATIENT
  Age: 41 Year
  Sex: Female

DRUGS (6)
  1. PREDNISONE. [Concomitant]
     Active Substance: PREDNISONE
  2. DIGOXIN. [Concomitant]
     Active Substance: DIGOXIN
  3. LETAIRIS [Suspect]
     Active Substance: AMBRISENTAN
     Indication: PULMONARY ARTERIAL HYPERTENSION
     Route: 048
  4. ACTEMRA [Concomitant]
     Active Substance: TOCILIZUMAB
  5. SILDENAFIL. [Concomitant]
     Active Substance: SILDENAFIL
  6. PANTOPRAZOLE [Concomitant]
     Active Substance: PANTOPRAZOLE

REACTIONS (6)
  - Pulmonary veno-occlusive disease [None]
  - Pulmonary congestion [None]
  - Respiratory failure [None]
  - Pleural effusion [None]
  - Fluid overload [None]
  - Petechiae [None]

NARRATIVE: CASE EVENT DATE: 20181218
